FAERS Safety Report 6886954-2 (Version None)
Quarter: 2010Q3

REPORT INFORMATION
  Report Type: 
  Country: None (occurrence: None)
  Receive Date: 20100730
  Receipt Date: 20100517
  Transmission Date: 20110219
  Serious: Yes (Hospitalization)
  Sender: FDA-Public Use
  Company Number: FR-NOVOPROD-275787

PATIENT
  Age: 76 Year
  Sex: Male

DRUGS (9)
  1. NOVONORM [Suspect]
     Indication: DIABETES MELLITUS
     Dosage: 1 MG, TID
     Dates: end: 20080313
  2. BACTRIM [Concomitant]
     Indication: URINARY TRACT INFECTION
     Dosage: 160 MG/ 800 MG, QD
  3. INEXIUM                            /01479302/ [Concomitant]
  4. COVERSYL                           /00790701/ [Concomitant]
  5. CORDARONE [Concomitant]
  6. AMIODARONE HCL [Concomitant]
     Dosage: 200 MG, QD
  7. PERINDOPRIL [Concomitant]
     Dosage: 2 MG, QD
  8. FUROSEMIDE [Concomitant]
     Dosage: 40 MG, QD
  9. ESOMEPRAZOLE MAGNESIUM [Concomitant]
     Dosage: 20 MG, QD

REACTIONS (3)
  - APHASIA [None]
  - DRUG INTERACTION [None]
  - HYPOGLYCAEMIA [None]
